FAERS Safety Report 4386986-2 (Version None)
Quarter: 2004Q2

REPORT INFORMATION
  Report Type: 
  Country: None (occurrence: None)
  Receive Date: 20040623
  Receipt Date: 20040611
  Transmission Date: 20050107
  Serious: Yes (Hospitalization, Other)
  Sender: FDA-Public Use
  Company Number: 2004039317

PATIENT
  Age: 10 Month
  Sex: Female

DRUGS (3)
  1. GLUCOTROL [Suspect]
     Indication: ILL-DEFINED DISORDER
     Dosage: ORAL
     Route: 048
     Dates: start: 20040101, end: 20040101
  2. GLUCOTROL XL [Suspect]
     Indication: ILL-DEFINED DISORDER
     Dosage: ORAL
     Route: 048
     Dates: start: 20040101, end: 20040101
  3. ANTIHYPERTENSIVES (ANTIHYPERTENSIVES) [Suspect]
     Indication: ILL-DEFINED DISORDER
     Dosage: ORAL
     Route: 048
     Dates: start: 20040101, end: 20040101

REACTIONS (8)
  - ACCIDENTAL EXPOSURE [None]
  - BLOOD GLUCOSE DECREASED [None]
  - BLOOD INSULIN INCREASED [None]
  - DIARRHOEA [None]
  - GRAND MAL CONVULSION [None]
  - HYPOTENSION [None]
  - MEDICATION ERROR [None]
  - SEPSIS [None]
